FAERS Safety Report 25585869 (Version 1)
Quarter: 2025Q3

REPORT INFORMATION
  Report Type: Spontaneous
  Country: JP (occurrence: JP)
  Receive Date: 20250721
  Receipt Date: 20250721
  Transmission Date: 20251021
  Serious: Yes (Other)
  Sender: TAKEDA
  Company Number: JP-MMM-Otsuka-VG67SOW2

PATIENT

DRUGS (2)
  1. ICLUSIG [Interacting]
     Active Substance: PONATINIB HYDROCHLORIDE
     Indication: Product used for unknown indication
  2. AVAPRO [Interacting]
     Active Substance: IRBESARTAN
     Indication: Product used for unknown indication

REACTIONS (3)
  - Circulatory collapse [Unknown]
  - Arrhythmia [Unknown]
  - Drug interaction [Unknown]
